FAERS Safety Report 24795006 (Version 1)
Quarter: 2024Q4

REPORT INFORMATION
  Report Type: Spontaneous
  Country: US (occurrence: US)
  Receive Date: 20241231
  Receipt Date: 20241231
  Transmission Date: 20250115
  Serious: No
  Sender: DR REDDYS
  Company Number: US-DRL-USA-LIT/USA/24/0019056

PATIENT
  Age: 48 Year
  Sex: Male

DRUGS (7)
  1. PREGABALIN [Suspect]
     Active Substance: PREGABALIN
     Indication: Chorea
  2. PRAMIPEXOLE [Suspect]
     Active Substance: PRAMIPEXOLE\PRAMIPEXOLE DIHYDROCHLORIDE
     Indication: Chorea
  3. TETRABENAZINE [Suspect]
     Active Substance: TETRABENAZINE
     Indication: Chorea
  4. GABAPENTIN [Suspect]
     Active Substance: GABAPENTIN
     Indication: Chorea
  5. BENZTROPINE [Suspect]
     Active Substance: BENZTROPINE
     Indication: Chorea
  6. BACLOFEN [Suspect]
     Active Substance: BACLOFEN
     Indication: Chorea
  7. CLONAZEPAM [Suspect]
     Active Substance: CLONAZEPAM
     Indication: Chorea

REACTIONS (1)
  - Drug ineffective for unapproved indication [Unknown]
